FAERS Safety Report 17504467 (Version 1)
Quarter: 2020Q1

REPORT INFORMATION
  Report Type: Spontaneous
  Country: ES (occurrence: ES)
  Receive Date: 20200305
  Receipt Date: 20200305
  Transmission Date: 20200409
  Serious: Yes (Other)
  Sender: FDA-Public Use
  Company Number: ES-MYLANLABS-2020M1023389

PATIENT
  Age: 60 Year
  Sex: Female

DRUGS (2)
  1. OXALIPLATIN. [Suspect]
     Active Substance: OXALIPLATIN
     Indication: COLON CANCER
     Dosage: 0.858 MG(CUMULATIVE DOSE OF 0.858 MG; TARGET DOSE OF 108 MG)
     Route: 065
  2. OXALIPLATIN. [Suspect]
     Active Substance: OXALIPLATIN
     Indication: IMMUNOSUPPRESSANT DRUG THERAPY

REACTIONS (6)
  - Erythema [Unknown]
  - Anaphylactic reaction [Unknown]
  - Pruritus [Unknown]
  - Oxygen saturation decreased [Unknown]
  - Hypotension [Unknown]
  - Dizziness [Unknown]
